FAERS Safety Report 4955003-5 (Version None)
Quarter: 2006Q1

REPORT INFORMATION
  Report Type: 
  Country: None (occurrence: None)
  Receive Date: 20060322
  Receipt Date: 20060310
  Transmission Date: 20060701
  Serious: Yes (Other)
  Sender: FDA-Public Use
  Company Number: 2005053597

PATIENT
  Age: 53 Year
  Sex: Female
  Weight: 86.1834 kg

DRUGS (6)
  1. AROMASIN [Suspect]
     Indication: BREAST CANCER
     Dosage: 25 MG (25 MG, DAILY), ORAL
     Route: 048
     Dates: start: 20040501, end: 20050201
  2. ARIMIDEX ZENECA (ANASTROZOLE) [Suspect]
     Indication: ILL-DEFINED DISORDER
     Dates: start: 20040101, end: 20050101
  3. PROTONIX [Concomitant]
  4. PROZAC [Concomitant]
  5. VITAMINS (VITAMINS) [Concomitant]
  6. CELEXA [Concomitant]

REACTIONS (15)
  - ABDOMINAL DISTENSION [None]
  - ABNORMAL BEHAVIOUR [None]
  - ANGER [None]
  - ANXIETY [None]
  - CHEST PAIN [None]
  - COGNITIVE DISORDER [None]
  - CONDITION AGGRAVATED [None]
  - DEPRESSION [None]
  - FATIGUE [None]
  - GASTROOESOPHAGEAL REFLUX DISEASE [None]
  - HEADACHE [None]
  - OESTROGEN DEFICIENCY [None]
  - PANIC ATTACK [None]
  - PSYCHIATRIC SYMPTOM [None]
  - SENSATION OF HEAVINESS [None]
